FAERS Safety Report 19820392 (Version 1)
Quarter: 2021Q3

REPORT INFORMATION
  Report Type: Spontaneous
  Country: US (occurrence: US)
  Receive Date: 20210913
  Receipt Date: 20210913
  Transmission Date: 20211014
  Serious: No
  Sender: FDA-Public Use
  Company Number: US-SA-2021SA299584

PATIENT
  Age: 38 Year
  Sex: Female

DRUGS (1)
  1. DUPIXENT [Suspect]
     Active Substance: DUPILUMAB
     Dosage: INJECT 2 ML (300MG/2ML) 2 IN THIGH. OR UPPER ARM ROTATING INJECTION
     Route: 058
     Dates: start: 20210223

REACTIONS (1)
  - Dry skin [Unknown]
